FAERS Safety Report 4350381-2 (Version None)
Quarter: 2004Q2

REPORT INFORMATION
  Report Type: 
  Country: None (occurrence: None)
  Receive Date: 20040430
  Receipt Date: 20040127
  Transmission Date: 20050107
  Serious: No
  Sender: FDA-Public Use
  Company Number: US-BRISTOL-MYERS SQUIBB COMPANY-12502985

PATIENT
  Age: 75 Year
  Sex: Female
  Weight: 52 kg

DRUGS (1)
  1. LAC-HYDRIN [Suspect]
     Indication: DRY SKIN
     Dosage: DURATION: 4 TO 5 DAYS

REACTIONS (2)
  - DRUG INEFFECTIVE [None]
  - ERYTHEMA [None]
